FAERS Safety Report 10869607 (Version 2)
Quarter: 2015Q3

REPORT INFORMATION
  Report Type: Spontaneous
  Country: US (occurrence: US)
  Receive Date: 20150226
  Receipt Date: 20150724
  Transmission Date: 20151125
  Serious: Yes (Other)
  Sender: FDA-Public Use
  Company Number: US-JNJFOC-20150212572

PATIENT
  Sex: Female
  Weight: 68.04 kg

DRUGS (3)
  1. PROPOXYPHENE. [Suspect]
     Active Substance: PROPOXYPHENE
     Indication: PRODUCT USED FOR UNKNOWN INDICATION
     Route: 065
  2. TYLENOL EXTRA STRENGTH [Suspect]
     Active Substance: ACETAMINOPHEN
     Indication: BRONCHITIS
     Route: 048
     Dates: start: 200512, end: 200512
  3. TYLENOL DAY AND NIGHT [Suspect]
     Active Substance: ACETAMINOPHEN\DIPHENHYDRAMINE
     Indication: BRONCHITIS
     Route: 065
     Dates: start: 200512

REACTIONS (5)
  - Overdose [Unknown]
  - Hypophagia [None]
  - Multiple injuries [None]
  - Hepatotoxicity [Unknown]
  - Product use issue [Unknown]

NARRATIVE: CASE EVENT DATE: 2005
